FAERS Safety Report 16559764 (Version 2)
Quarter: 2021Q4

REPORT INFORMATION
  Report Type: Spontaneous
  Country: US (occurrence: US)
  Receive Date: 20190711
  Receipt Date: 20211124
  Transmission Date: 20220303
  Serious: No
  Sender: FDA-Public Use
  Company Number: US-PFIZER INC-2019292756

PATIENT
  Age: 79 Year
  Sex: Female
  Weight: 74.84 kg

DRUGS (1)
  1. VENLAFAXINE HCL [Suspect]
     Active Substance: VENLAFAXINE HYDROCHLORIDE
     Dosage: UNK

REACTIONS (4)
  - Crying [Not Recovered/Not Resolved]
  - Hyperhidrosis [Unknown]
  - Feeling cold [Unknown]
  - Personality disorder [Unknown]
